FAERS Safety Report 6518508-1 (Version None)
Quarter: 2009Q4

REPORT INFORMATION
  Report Type: 
  Country: None (occurrence: None)
  Receive Date: 20091226
  Receipt Date: 20091217
  Transmission Date: 20100525
  Serious: Yes (Hospitalization, Other)
  Sender: FDA-Public Use
  Company Number: FR-JNJFOC-20091205514

PATIENT
  Age: 48 Year
  Sex: Female

DRUGS (9)
  1. TAVANIC [Suspect]
     Indication: SKIN ULCER
     Route: 048
  2. TAVANIC [Suspect]
     Route: 048
  3. RIFADIN [Suspect]
     Indication: SKIN ULCER
     Route: 048
  4. GLUCOPHAGE [Concomitant]
     Route: 065
  5. ZOCOR [Concomitant]
  6. LEVOTHYROXINE SODIUM [Concomitant]
     Route: 065
  7. ARIXTRA [Concomitant]
     Route: 065
  8. LYRICA [Concomitant]
     Route: 065
  9. ULTRA LEVURE LYOPHILISEE [Concomitant]
     Route: 065

REACTIONS (3)
  - HYPERTHERMIA [None]
  - NAUSEA [None]
  - RASH MACULO-PAPULAR [None]
